FAERS Safety Report 4264739-3 (Version None)
Quarter: 2004Q1

REPORT INFORMATION
  Report Type: 
  Country: None (occurrence: None)
  Receive Date: 20040102
  Receipt Date: 20031218
  Transmission Date: 20041129
  Serious: Yes (Death, Other)
  Sender: FDA-Public Use
  Company Number: JP_031202403

PATIENT
  Age: 38 Year
  Sex: Male

DRUGS (4)
  1. ONCOVIN [Suspect]
     Indication: DIFFUSE LARGE B-CELL LYMPHOMA
  2. CYCLOPHOSPHAMIDE [Concomitant]
  3. DOXORUBICIN HCL [Concomitant]
  4. PREDNISOLONE [Concomitant]

REACTIONS (8)
  - ANAL ABSCESS [None]
  - CELLULITIS [None]
  - DIFFUSE LARGE B-CELL LYMPHOMA RECURRENT [None]
  - FISTULA [None]
  - INFECTION [None]
  - MALIGNANT NEOPLASM PROGRESSION [None]
  - NEUTROPHIL COUNT DECREASED [None]
  - RECTAL STENOSIS [None]
